FAERS Safety Report 15967026 (Version 1)
Quarter: 2019Q1

REPORT INFORMATION
  Report Type: Spontaneous
  Country: FR (occurrence: FR)
  Receive Date: 20190215
  Receipt Date: 20190215
  Transmission Date: 20190418
  Serious: Yes (Hospitalization, Other)
  Sender: FDA-Public Use
  Company Number: FR-TEVA-2019-FR-1011428

PATIENT
  Age: 88 Year
  Sex: Female
  Weight: 50 kg

DRUGS (3)
  1. OFLOXACINE [Suspect]
     Active Substance: OFLOXACIN
     Indication: PYELONEPHRITIS
     Dosage: 400 MILLIGRAM DAILY;
     Route: 048
     Dates: start: 20181208, end: 20181221
  2. COUMADINE [Interacting]
     Active Substance: WARFARIN SODIUM
     Indication: ARRHYTHMIA
     Route: 048
     Dates: end: 20181208
  3. LORAMYC [Interacting]
     Active Substance: MICONAZOLE
     Indication: OROPHARYNGEAL CANDIDIASIS
     Route: 048
     Dates: start: 20181207, end: 20181217

REACTIONS (3)
  - International normalised ratio increased [Recovered/Resolved]
  - Drug interaction [Recovered/Resolved]
  - Anaemia [Recovered/Resolved]

NARRATIVE: CASE EVENT DATE: 20181215
